FAERS Safety Report 8224992-8 (Version None)
Quarter: 2012Q1

REPORT INFORMATION
  Report Type: 
  Country: None (occurrence: None)
  Receive Date: 20120321
  Receipt Date: 20120309
  Transmission Date: 20120608
  Serious: Yes (Hospitalization, Other)
  Sender: FDA-Public Use
  Company Number: DE-ROCHE-781107

PATIENT
  Sex: Female
  Weight: 48 kg

DRUGS (6)
  1. DOCETAXEL [Suspect]
     Indication: BREAST CANCER METASTATIC
     Dosage: INFUSION DATE OF LAST DOSE PRIOR TO SAE: 23 MARCH 2011
     Route: 042
     Dates: start: 20101230, end: 20110323
  2. FORADIL [Concomitant]
  3. AVASTIN [Suspect]
     Indication: BREAST CANCER METASTATIC
     Dosage: INFUSION,DATE OF LAST DOSE PRIOR TO SAE: 25 MAY 2011. DRUG DISCONTINUED ON 06 JUNE 2011.
     Route: 042
     Dates: start: 20101230, end: 20110525
  4. SALBULAIR [Concomitant]
  5. PACLITAXEL [Suspect]
     Indication: BREAST CANCER METASTATIC
     Dosage: INFUSION DATE OF LAST DOSE PRIOR TO SAE: 25 MAY 2011
     Route: 042
     Dates: start: 20110413, end: 20110525
  6. BUDESONIDE [Concomitant]

REACTIONS (3)
  - EJECTION FRACTION DECREASED [None]
  - DIARRHOEA [None]
  - PNEUMONIA [None]
